FAERS Safety Report 12356929 (Version 5)
Quarter: 2016Q2

REPORT INFORMATION
  Report Type: Spontaneous
  Country: US (occurrence: US)
  Receive Date: 20160511
  Receipt Date: 20160627
  Transmission Date: 20160815
  Serious: Yes (Other)
  Sender: FDA-Public Use
  Company Number: US-PFIZER INC-2016242170

PATIENT
  Age: 68 Year
  Sex: Female
  Weight: 63 kg

DRUGS (6)
  1. XALKORI [Suspect]
     Active Substance: CRIZOTINIB
     Indication: NON-SMALL CELL LUNG CANCER
     Dosage: 200 MG, 2X/DAY
     Route: 048
     Dates: start: 20160426, end: 20160511
  2. PRILOSEC [Concomitant]
     Active Substance: OMEPRAZOLE MAGNESIUM
     Dosage: UNK
  3. PAXIL [Concomitant]
     Active Substance: PAROXETINE HYDROCHLORIDE
     Dosage: 10 MG, UNK
  4. NORCO [Concomitant]
     Active Substance: ACETAMINOPHEN\HYDROCODONE BITARTRATE
     Dosage: UNK
  5. ANTIVERT [Concomitant]
     Active Substance: MECLIZINE HYDROCHLORIDE
     Dosage: UNK
  6. XANAX [Concomitant]
     Active Substance: ALPRAZOLAM
     Dosage: UNK

REACTIONS (20)
  - Fatigue [Recovering/Resolving]
  - Emotional disorder [Unknown]
  - Fall [Recovered/Resolved]
  - Abdominal pain [Recovered/Resolved]
  - Condition aggravated [Unknown]
  - Dizziness [Unknown]
  - Pain [Unknown]
  - Pyrexia [Recovering/Resolving]
  - Balance disorder [Recovered/Resolved]
  - Nausea [Recovered/Resolved]
  - Neck pain [Unknown]
  - Diarrhoea [Unknown]
  - Dehydration [Unknown]
  - Visual acuity reduced [Recovered/Resolved]
  - Pain in extremity [Recovered/Resolved]
  - Neuralgia [Unknown]
  - Asthenia [Unknown]
  - Vertigo [Recovered/Resolved]
  - Abdominal pain upper [Unknown]
  - Viral infection [Recovered/Resolved]

NARRATIVE: CASE EVENT DATE: 2016
